FAERS Safety Report 4514157-5 (Version None)
Quarter: 2004Q4

REPORT INFORMATION
  Report Type: 
  Country: None (occurrence: None)
  Receive Date: 20041124
  Receipt Date: 20041118
  Transmission Date: 20050328
  Serious: Yes (Other)
  Sender: FDA-Public Use
  Company Number: USA-2004-0017729

PATIENT
  Age: 37 Year
  Sex: Male

DRUGS (1)
  1. CEFDITOREN PIVOXIL (SIMILAR TO NDA 21-222) (CEFDITOREN PIVOXIL) OTHER [Suspect]
     Indication: PERIODONTITIS

REACTIONS (2)
  - GENERALISED OEDEMA [None]
  - MALAISE [None]
